FAERS Safety Report 4976442-2 (Version None)
Quarter: 2006Q2

REPORT INFORMATION
  Report Type: 
  Country: None (occurrence: None)
  Receive Date: 20060412
  Receipt Date: 20060330
  Transmission Date: 20061013
  Serious: Yes (Hospitalization)
  Sender: FDA-Public Use
  Company Number: 2006048301

PATIENT
  Age: 83 Year
  Sex: Female

DRUGS (9)
  1. SERTRALINE [Suspect]
     Indication: DEPRESSION
  2. METHADONE HCL [Suspect]
     Indication: PAIN
     Dosage: 20 MG (1 D),
  3. GUAIFENESIN W/ DEXTROMETHORPHAN (DEXTROMETHORPHAN, GUAIFENESIN) [Suspect]
     Indication: COUGH
     Dosage: 60 MG (30 MG, 2 IN 1 D),
  4. ESCITALOPRAM (ESCITALOPRAM) [Suspect]
     Indication: DEPRESSION
  5. HYDROCODONE BITARTRATE + ACETAMINOPHEN [Suspect]
     Indication: PAIN
     Dosage: (AS NECESSARY)
  6. IPRATROPIUM BROMIDE [Concomitant]
  7. METOCLOPRAMIDE [Concomitant]
  8. METOLAZONE [Concomitant]
  9. WARFARIN SODIUM [Concomitant]

REACTIONS (17)
  - BLOOD UREA INCREASED [None]
  - CONFUSIONAL STATE [None]
  - DECREASED APPETITE [None]
  - DEHYDRATION [None]
  - DELIRIUM [None]
  - DEPRESSED MOOD [None]
  - DISTURBANCE IN ATTENTION [None]
  - DRUG INTERACTION [None]
  - FALL [None]
  - FEELING OF DESPAIR [None]
  - HYPERSOMNIA [None]
  - HYPONATRAEMIA [None]
  - IMPAIRED SELF-CARE [None]
  - LETHARGY [None]
  - MEMORY IMPAIRMENT [None]
  - MORBID THOUGHTS [None]
  - STARING [None]
